FAERS Safety Report 9143878 (Version 1)
Quarter: 2013Q1

REPORT INFORMATION
  Report Type: Report from Study
  Country: ZA (occurrence: ZA)
  Receive Date: 20130306
  Receipt Date: 20130306
  Transmission Date: 20140127
  Serious: Yes (Death)
  Sender: FDA-Public Use
  Company Number: ZA-ROCHE-1197265

PATIENT
  Sex: Female

DRUGS (6)
  1. MIRCERA [Suspect]
     Indication: PRODUCT USED FOR UNKNOWN INDICATION
     Route: 065
     Dates: start: 2009
  2. MIRCERA [Suspect]
     Route: 065
     Dates: start: 20090528
  3. MIRCERA [Suspect]
     Route: 065
     Dates: start: 20091207
  4. MIRCERA [Suspect]
     Route: 065
     Dates: start: 20110608
  5. MIRCERA [Suspect]
     Route: 065
     Dates: start: 20120515
  6. MIRCERA [Suspect]
     Route: 065
     Dates: start: 20120919

REACTIONS (1)
  - Death [Fatal]
